APPROVED DRUG PRODUCT: NYSTATIN
Active Ingredient: NYSTATIN
Strength: 500,000 UNITS
Dosage Form/Route: TABLET;ORAL
Application: A062474 | Product #001 | TE Code: AA
Applicant: HERITAGE PHARMACEUTICALS INC DBA AVET PHARMACEUTICALS INC
Approved: Dec 22, 1983 | RLD: No | RS: No | Type: RX